FAERS Safety Report 22008768 (Version 1)
Quarter: 2023Q1

REPORT INFORMATION
  Report Type: Spontaneous
  Country: IN (occurrence: IN)
  Receive Date: 20230219
  Receipt Date: 20230219
  Transmission Date: 20230417
  Serious: Yes (Hospitalization, Other)
  Sender: FDA-Public Use
  Company Number: None

PATIENT
  Age: 43 Year
  Sex: Male

DRUGS (7)
  1. PREDNISOLONE [Suspect]
     Active Substance: PREDNISOLONE
     Indication: Immunosuppressant drug therapy
     Dosage: UNK
     Route: 065
  2. PREDNISOLONE [Suspect]
     Active Substance: PREDNISOLONE
     Indication: Renal transplant
     Dosage: UNK (LOW-DOSE STEROIDS)
     Route: 065
  3. CYCLOSPORINE [Suspect]
     Active Substance: CYCLOSPORINE
     Indication: Immunosuppressant drug therapy
     Dosage: UNK
     Route: 065
  4. CYCLOSPORINE [Suspect]
     Active Substance: CYCLOSPORINE
     Indication: Renal transplant
  5. AZATHIOPRINE [Suspect]
     Active Substance: AZATHIOPRINE
     Indication: Immunosuppressant drug therapy
     Dosage: UNK
     Route: 065
  6. AZATHIOPRINE [Suspect]
     Active Substance: AZATHIOPRINE
     Indication: Renal transplant
     Dosage: UNK (LOW- DOSE ; DOSE REDUCED)
     Route: 065
  7. METHYLPREDNISOLONE [Suspect]
     Active Substance: METHYLPREDNISOLONE
     Indication: Complications of transplanted kidney
     Dosage: 1.5 GRAM, TOTAL (PULSES FOR 5 DAYS/HIGH-DOSE PARENTERAL STEROIDS)
     Route: 051

REACTIONS (8)
  - Blepharitis [Recovered/Resolved]
  - Choroiditis [Recovered/Resolved]
  - Depressed level of consciousness [Recovered/Resolved]
  - Skin ulcer [Recovered/Resolved]
  - Nocardiosis [Recovered/Resolved]
  - Mycobacterium abscessus infection [Recovered/Resolved]
  - Atypical mycobacterial infection [Recovered/Resolved]
  - Complications of transplanted kidney [Unknown]
